FAERS Safety Report 4974863-5 (Version None)
Quarter: 2006Q1

REPORT INFORMATION
  Report Type: 
  Country: None (occurrence: None)
  Receive Date: 20060227
  Receipt Date: 20060113
  Transmission Date: 20060701
  Serious: No
  Sender: FDA-Public Use
  Company Number: PHEH2006US00986

PATIENT
  Age: 93 Year
  Sex: Female

DRUGS (1)
  1. ENABLEX [Suspect]
     Indication: POLLAKIURIA
     Dates: start: 20060109

REACTIONS (1)
  - DRUG INEFFECTIVE [None]
